FAERS Safety Report 13565769 (Version 1)
Quarter: 2017Q2

REPORT INFORMATION
  Report Type: Spontaneous
  Country: KR (occurrence: KR)
  Receive Date: 20170520
  Receipt Date: 20170520
  Transmission Date: 20170830
  Serious: Yes (Other)
  Sender: FDA-Public Use
  Company Number: KR-AXELLIA-001096

PATIENT
  Age: 45 Year
  Sex: Female

DRUGS (4)
  1. TAZOPER [Concomitant]
     Indication: SEPSIS
     Dates: start: 20151213, end: 20151224
  2. PACLITAXEL/PACLITAXEL LIPOSOME [Concomitant]
     Indication: CHEMOTHERAPY
     Dates: start: 20151230
  3. VANCOMYCIN [Suspect]
     Active Substance: VANCOMYCIN
     Indication: SEPSIS
     Dates: start: 20151213, end: 20151224
  4. TRASTUZUMAB [Concomitant]
     Active Substance: TRASTUZUMAB
     Indication: CHEMOTHERAPY
     Dates: start: 20151230

REACTIONS (1)
  - Drug resistance [Unknown]
